FAERS Safety Report 9416222 (Version 1)
Quarter: 2013Q3

REPORT INFORMATION
  Report Type: Spontaneous
  Country: BR (occurrence: BR)
  Receive Date: 20130724
  Receipt Date: 20130724
  Transmission Date: 20140515
  Serious: Yes (Other)
  Sender: FDA-Public Use
  Company Number: BR-ACCORD-018679

PATIENT
  Age: 84 Year
  Sex: Female
  Weight: 56 kg

DRUGS (7)
  1. PACLITAXEL [Suspect]
     Indication: CHEMOTHERAPY
     Route: 042
     Dates: start: 20130116, end: 20130116
  2. RANITIDINE [Concomitant]
     Route: 042
     Dates: start: 20130116, end: 20130116
  3. DIPHENHYDRAMINE [Concomitant]
     Route: 042
     Dates: start: 20130116, end: 20130116
  4. ENALAPRIL [Concomitant]
     Route: 048
  5. LACTULOSE [Concomitant]
     Route: 048
     Dates: start: 20130107, end: 20130116
  6. DEXAMETHASONE [Concomitant]
     Route: 042
     Dates: start: 20130116, end: 20130116
  7. ATENOLOL [Concomitant]
     Route: 048
     Dates: start: 20130107, end: 20130206

REACTIONS (3)
  - Psychomotor hyperactivity [Recovered/Resolved]
  - Hypertension [Recovered/Resolved]
  - Malaise [Recovered/Resolved]
